FAERS Safety Report 5158544-3 (Version None)
Quarter: 2006Q4

REPORT INFORMATION
  Report Type: 
  Country: None (occurrence: None)
  Receive Date: 20061128
  Receipt Date: 20061114
  Transmission Date: 20070319
  Serious: Yes (Hospitalization)
  Sender: FDA-Public Use
  Company Number: DE-AMGEN-UK200274

PATIENT
  Age: 40 Year
  Sex: Female

DRUGS (3)
  1. KINERET [Suspect]
     Indication: OSTEOARTHRITIS
     Route: 065
     Dates: start: 20031101
  2. LANTAREL [Concomitant]
     Dates: start: 19890101
  3. PREDNISOLONE [Concomitant]

REACTIONS (2)
  - CELLULITIS [None]
  - FOOT DEFORMITY [None]
